FAERS Safety Report 22905365 (Version 2)
Quarter: 2024Q4

REPORT INFORMATION
  Report Type: Report from Study
  Country: US (occurrence: US)
  Receive Date: 20230905
  Receipt Date: 20241104
  Transmission Date: 20250115
  Serious: No
  Sender: NOVARTIS
  Company Number: US-002147023-NVSC2023US191344

PATIENT
  Sex: Female

DRUGS (1)
  1. ENTRESTO [Suspect]
     Active Substance: SACUBITRIL\VALSARTAN
     Indication: Product used for unknown indication
     Dosage: UNK
     Route: 065

REACTIONS (7)
  - Fibromyalgia [Unknown]
  - Arthritis [Unknown]
  - Muscle spasms [Unknown]
  - Hypersensitivity [Unknown]
  - Sneezing [Unknown]
  - Cardiac disorder [Unknown]
  - Anaemia [Unknown]
